FAERS Safety Report 6816819-3 (Version None)
Quarter: 2010Q3

REPORT INFORMATION
  Report Type: 
  Country: None (occurrence: None)
  Receive Date: 20100706
  Receipt Date: 20100701
  Transmission Date: 20110219
  Serious: Yes (Hospitalization, Disabling, Other)
  Sender: FDA-Public Use
  Company Number: US-ASTRAZENECA-2007UW21658

PATIENT
  Age: 18630 Day
  Sex: Female
  Weight: 88 kg

DRUGS (42)
  1. SEROQUEL [Suspect]
     Indication: DEPRESSION
     Dosage: 200 MG, 300 MG, 600 MG
     Route: 048
     Dates: start: 19980801, end: 20060901
  2. SEROQUEL [Suspect]
     Indication: BIPOLAR DISORDER
     Dosage: 200 MG, 300 MG, 600 MG
     Route: 048
     Dates: start: 19980801, end: 20060901
  3. SEROQUEL [Suspect]
     Indication: PARANOIA
     Dosage: 200 MG, 300 MG, 600 MG
     Route: 048
     Dates: start: 19980801, end: 20060901
  4. SEROQUEL [Suspect]
     Indication: ANXIETY
     Dosage: 200 MG, 300 MG, 600 MG
     Route: 048
     Dates: start: 19980801, end: 20060901
  5. SEROQUEL [Suspect]
     Dosage: 200 MG, 300 MG, 600 MG
     Route: 048
     Dates: start: 19980801, end: 20060901
  6. SEROQUEL [Suspect]
     Dosage: 200 MG, 300 MG, 600 MG
     Route: 048
     Dates: start: 19980801, end: 20060901
  7. SEROQUEL [Suspect]
     Dosage: 100-400 MG
     Route: 048
     Dates: start: 20010101, end: 20060101
  8. SEROQUEL [Suspect]
     Dosage: 100-400 MG
     Route: 048
     Dates: start: 20010101, end: 20060101
  9. SEROQUEL [Suspect]
     Dosage: 100-400 MG
     Route: 048
     Dates: start: 20010101, end: 20060101
  10. SEROQUEL [Suspect]
     Dosage: 100-400 MG
     Route: 048
     Dates: start: 20010101, end: 20060101
  11. SEROQUEL [Suspect]
     Dosage: 100-400 MG
     Route: 048
     Dates: start: 20010101, end: 20060101
  12. SEROQUEL [Suspect]
     Dosage: 100-400 MG
     Route: 048
     Dates: start: 20010101, end: 20060101
  13. DEPAKOTE [Concomitant]
  14. ZOLOFT [Concomitant]
  15. ASPIRIN [Concomitant]
  16. NORVASC [Concomitant]
  17. METFORMIN HCL [Concomitant]
  18. PLAVIX [Concomitant]
  19. LISINOPRIL [Concomitant]
  20. CELEBREX [Concomitant]
  21. FLEXERIL [Concomitant]
  22. OSCAL [Concomitant]
  23. ARICEPT [Concomitant]
  24. TRICOR [Concomitant]
  25. ATIVAN [Concomitant]
  26. REGULAR INSULIN [Concomitant]
  27. HALDOL [Concomitant]
  28. LIPITOR [Concomitant]
  29. NAVANE [Concomitant]
     Dates: start: 19900101, end: 20100401
  30. BISOPROLOL FUMARATE [Concomitant]
  31. AMANTADINE HCL [Concomitant]
  32. ABILIFY [Concomitant]
  33. KLONOPIN [Concomitant]
  34. LAMICTAL [Concomitant]
  35. RISPERDAL [Concomitant]
     Indication: ANXIETY
     Dates: start: 20061215
  36. RISPERDAL [Concomitant]
     Indication: BIPOLAR DISORDER
     Dates: start: 20061215
  37. RISPERDAL [Concomitant]
     Indication: SCHIZOAFFECTIVE DISORDER
     Dates: start: 20061215
  38. RISPERDAL [Concomitant]
     Indication: DEPRESSION
     Dates: start: 20061215
  39. RISPERDAL [Concomitant]
     Dates: start: 20070118, end: 20070813
  40. RISPERDAL [Concomitant]
     Dates: start: 20070118, end: 20070813
  41. RISPERDAL [Concomitant]
     Dates: start: 20070118, end: 20070813
  42. RISPERDAL [Concomitant]
     Dates: start: 20070118, end: 20070813

REACTIONS (28)
  - AGITATION [None]
  - BACK PAIN [None]
  - BLINDNESS [None]
  - CATARACT [None]
  - CEREBROVASCULAR ACCIDENT [None]
  - CONFUSIONAL STATE [None]
  - DELUSIONAL PERCEPTION [None]
  - DENTAL CARIES [None]
  - DIABETIC COMPLICATION [None]
  - FATIGUE [None]
  - GASTROOESOPHAGEAL REFLUX DISEASE [None]
  - GRANDIOSITY [None]
  - HALLUCINATION, AUDITORY [None]
  - HALLUCINATION, VISUAL [None]
  - INCOHERENT [None]
  - INSOMNIA [None]
  - IRRITABILITY [None]
  - MANIA [None]
  - MENTAL DISORDER [None]
  - MOOD SWINGS [None]
  - OSTEOPOROSIS [None]
  - PARANOIA [None]
  - PSYCHOTIC DISORDER [None]
  - RESTLESS LEGS SYNDROME [None]
  - SCHIZOPHRENIA [None]
  - SCHIZOPHRENIA, DISORGANISED TYPE [None]
  - SUICIDAL IDEATION [None]
  - TYPE 2 DIABETES MELLITUS [None]
